FAERS Safety Report 9447525 (Version 2)
Quarter: 2017Q3

REPORT INFORMATION
  Report Type: Spontaneous
  Country: US (occurrence: US)
  Receive Date: 20130808
  Receipt Date: 20170928
  Transmission Date: 20171128
  Serious: Yes (Other)
  Sender: FDA-Public Use
  Company Number: US-PFIZER INC-2013228022

PATIENT
  Sex: Male

DRUGS (1)
  1. VISTARIL [Suspect]
     Active Substance: HYDROXYZINE PAMOATE
     Dosage: UNK
     Dates: start: 200908

REACTIONS (3)
  - Anger [Unknown]
  - Aggression [Unknown]
  - Hallucination [Unknown]
